FAERS Safety Report 10408672 (Version 1)
Quarter: 2014Q3

REPORT INFORMATION
  Report Type: Spontaneous
  Country: US (occurrence: None)
  Receive Date: 20140822
  Receipt Date: 20140822
  Transmission Date: 20150326
  Serious: No
  Sender: FDA-Public Use
  Company Number: None

PATIENT
  Age: 55 Year
  Sex: Female
  Weight: 72.58 kg

DRUGS (1)
  1. VENLAFAXINE [Suspect]
     Active Substance: VENLAFAXINE HYDROCHLORIDE
     Indication: DEPRESSION
     Dosage: 2 TABS DAILY  ONCE DAILY TAKEN BY MOUTH
     Route: 048
     Dates: start: 20140807, end: 20140816

REACTIONS (7)
  - Product quality issue [None]
  - Drug effect decreased [None]
  - Dizziness [None]
  - Hot flush [None]
  - Hyperhidrosis [None]
  - Confusional state [None]
  - Paraesthesia [None]

NARRATIVE: CASE EVENT DATE: 20140809
